FAERS Safety Report 16514525 (Version 3)
Quarter: 2021Q3

REPORT INFORMATION
  Report Type: Report from Study
  Country: AR (occurrence: AR)
  Receive Date: 20190702
  Receipt Date: 20210810
  Transmission Date: 20211014
  Serious: Yes (Other)
  Sender: FDA-Public Use
  Company Number: PHHY2019AR149253

PATIENT
  Age: 53 Year
  Sex: Male

DRUGS (2)
  1. DIOVAN D [Suspect]
     Active Substance: HYDROCHLOROTHIAZIDE\VALSARTAN
     Indication: HYPERTENSION
     Dosage: 2 DF (HYDROCHLOROTHIAZIDE 12.5 AND VALSARTAN 160MG), QD
     Route: 065
     Dates: start: 2005
  2. DIOVAN D [Suspect]
     Active Substance: HYDROCHLOROTHIAZIDE\VALSARTAN
     Dosage: 1 DF, (320/12.5 UNIT NOT PROVIDED) (STARTED 7 DAYS AGO) QD
     Route: 065

REACTIONS (4)
  - Vision blurred [Unknown]
  - Retinal detachment [Recovering/Resolving]
  - Eye oedema [Unknown]
  - Visual impairment [Recovering/Resolving]

NARRATIVE: CASE EVENT DATE: 201905
